FAERS Safety Report 25683339 (Version 1)
Quarter: 2025Q3

REPORT INFORMATION
  Report Type: Spontaneous
  Country: JP (occurrence: JP)
  Receive Date: 20250814
  Receipt Date: 20250814
  Transmission Date: 20251021
  Serious: Yes (Hospitalization)
  Sender: MERCK SHARP & DOHME LLC
  Company Number: JP-009507513-2317865

PATIENT
  Age: 55 Year
  Sex: Female

DRUGS (2)
  1. KEYTRUDA [Suspect]
     Active Substance: PEMBROLIZUMAB
     Indication: Metastatic uterine cancer
     Route: 065
  2. LENVATINIB [Suspect]
     Active Substance: LENVATINIB
     Indication: Metastatic uterine cancer

REACTIONS (4)
  - Abscess intestinal [Unknown]
  - Immune-mediated enterocolitis [Unknown]
  - Cryptitis [Unknown]
  - Immune-mediated proctitis [Unknown]
